FAERS Safety Report 5276106-4 (Version None)
Quarter: 2007Q1

REPORT INFORMATION
  Report Type: 
  Country: None (occurrence: None)
  Receive Date: 20070326
  Receipt Date: 20070316
  Transmission Date: 20070707
  Serious: Yes (Death, Hospitalization)
  Sender: FDA-Public Use
  Company Number: HQWYE878126FEB07

PATIENT
  Sex: Female
  Weight: 56.3 kg

DRUGS (12)
  1. MYLOTARG [Suspect]
     Indication: MYELODYSPLASTIC SYNDROME
     Route: 042
     Dates: start: 20070129, end: 20070129
  2. GLYBURIDE [Concomitant]
     Indication: DIABETES MELLITUS NON-INSULIN-DEPENDENT
     Route: 048
     Dates: start: 20070103
  3. LEVOTHYROXINE SODIUM [Concomitant]
     Indication: HYPOTHYROIDISM
     Route: 048
     Dates: start: 20070103
  4. FOLIC ACID [Concomitant]
     Indication: FOLATE DEFICIENCY
     Route: 048
     Dates: start: 20070103
  5. VYTORIN [Concomitant]
     Indication: HYPERLIPIDAEMIA
     Dates: start: 20070122
  6. FLUCONAZOLE [Concomitant]
     Indication: CANDIDIASIS
     Route: 048
     Dates: start: 20070122
  7. VITAMIN B-12 [Concomitant]
     Route: 048
     Dates: start: 20070117
  8. MULTIVIT [Concomitant]
     Dosage: UNKNOWN DAILY DOSE
     Route: 048
     Dates: start: 20070117
  9. ACETAMINOPHEN [Concomitant]
     Indication: PYREXIA
     Dosage: UNSPECIFIED DOSE, AS NEEDED FOR FEVER
     Route: 048
     Dates: start: 20070117
  10. COD-LIVER OIL [Concomitant]
     Dates: start: 20070117
  11. CIPRO [Concomitant]
     Indication: PROPHYLAXIS
     Route: 048
     Dates: start: 20070103
  12. NEXIUM [Concomitant]
     Indication: GASTROOESOPHAGEAL REFLUX DISEASE
     Route: 048
     Dates: start: 20070103

REACTIONS (6)
  - DISEASE PROGRESSION [None]
  - DISORIENTATION [None]
  - INFECTION [None]
  - MENTAL STATUS CHANGES [None]
  - PNEUMONIA FUNGAL [None]
  - PYREXIA [None]
